FAERS Safety Report 8556663-2 (Version None)
Quarter: 2012Q3

REPORT INFORMATION
  Report Type: 
  Country: None (occurrence: None)
  Receive Date: 20120801
  Receipt Date: 20120723
  Transmission Date: 20120928
  Serious: Yes (Death, Hospitalization)
  Sender: FDA-Public Use
  Company Number: JP-SANOFI-AVENTIS-2012SA045038

PATIENT
  Age: 65 Year
  Sex: Male
  Weight: 72 kg

DRUGS (10)
  1. CLOPIDOGREL BISULFATE [Suspect]
     Dosage: MAINTENANCE DOSE
     Route: 048
     Dates: start: 20120321, end: 20120604
  2. CLOPIDOGREL BISULFATE [Suspect]
     Dosage: STARTING DOSE.
     Route: 048
  3. IMIDAPRIL HYDROCHLORIDE [Concomitant]
     Route: 048
  4. CARVEDILOL [Concomitant]
     Route: 048
  5. RABEPRAZOLE SODIUM [Concomitant]
     Indication: PROPHYLAXIS
     Route: 048
  6. CONIEL [Concomitant]
     Route: 048
  7. LIPITOR [Concomitant]
     Indication: PROPHYLAXIS
     Route: 048
  8. ASPIRIN [Concomitant]
     Route: 048
  9. OLMESARTAN MEDOXOMIL [Concomitant]
     Route: 048
  10. UROLOGICALS [Concomitant]
     Route: 048

REACTIONS (2)
  - CARDIAC FAILURE [None]
  - CHEST PAIN [None]
